FAERS Safety Report 5651901-8 (Version None)
Quarter: 2008Q1

REPORT INFORMATION
  Report Type: 
  Country: None (occurrence: None)
  Receive Date: 20080305
  Receipt Date: 20080226
  Transmission Date: 20080703
  Serious: Yes (Hospitalization)
  Sender: FDA-Public Use
  Company Number: GB-MERCK-0701GBR00017

PATIENT
  Age: 91 Year
  Sex: Male

DRUGS (10)
  1. ZOCOR [Suspect]
     Indication: MYOCARDIAL INFARCTION
     Route: 048
     Dates: start: 20061112, end: 20061125
  2. ALLOPURINOL [Concomitant]
     Route: 065
  3. AMLODIPINE BESYLATE [Concomitant]
     Route: 065
  4. BISOPROLOL [Concomitant]
     Route: 065
  5. CLOPIDOGREL BISULFATE [Concomitant]
     Route: 065
  6. ESOMEPRAZOLE [Concomitant]
     Route: 065
  7. FUROSEMIDE [Concomitant]
     Route: 065
  8. NICORANDIL [Concomitant]
     Route: 065
  9. TAMSULOSIN HYDROCHLORIDE [Concomitant]
     Route: 065
  10. LEVOTHYROXINE SODIUM [Concomitant]
     Route: 065

REACTIONS (3)
  - MYOPATHY [None]
  - RENAL FAILURE [None]
  - RHABDOMYOLYSIS [None]
